FAERS Safety Report 25775450 (Version 2)
Quarter: 2025Q3

REPORT INFORMATION
  Report Type: Spontaneous
  Country: US (occurrence: US)
  Receive Date: 20250909
  Receipt Date: 20250918
  Transmission Date: 20251020
  Serious: No
  Sender: ROCHE
  Company Number: US-ROCHE-10000377018

PATIENT
  Age: 59 Year
  Sex: Female
  Weight: 90.72 kg

DRUGS (5)
  1. ACTEMRA ACTPEN [Suspect]
     Active Substance: TOCILIZUMAB
     Indication: Giant cell arteritis
     Dosage: PATIENT SELF-ADMINISTERS
     Route: 058
     Dates: start: 202412
  2. ACTEMRA ACTPEN [Suspect]
     Active Substance: TOCILIZUMAB
     Indication: Giant cell arteritis
     Dosage: PATIENT SELF-ADMINISTERS
     Route: 058
     Dates: start: 202411
  3. OMEPRAZOLE [Concomitant]
     Active Substance: OMEPRAZOLE
     Indication: Gastrooesophageal reflux disease
     Dosage: TAKES IN THE MORNING
     Route: 048
  4. OMEPRAZOLE [Concomitant]
     Active Substance: OMEPRAZOLE
     Indication: Dyspepsia
  5. NAPROXEN [Concomitant]
     Active Substance: NAPROXEN
     Dosage: TAKES IN THE EVENING
     Route: 048

REACTIONS (10)
  - Device defective [Unknown]
  - Device malfunction [Unknown]
  - Glycosylated haemoglobin increased [Unknown]
  - Blood cholesterol increased [Unknown]
  - Device issue [Unknown]
  - Pain [Recovered/Resolved]
  - Skin discolouration [Recovered/Resolved]
  - Tenderness [Recovered/Resolved]
  - Fatigue [Recovered/Resolved]
  - Pain in extremity [Recovered/Resolved]

NARRATIVE: CASE EVENT DATE: 20241101
